FAERS Safety Report 8674654 (Version 2)
Quarter: 2012Q4

REPORT INFORMATION
  Report Type: 
  Country: DE (occurrence: HU)
  Receive Date: 20120720
  Receipt Date: 20120914
  Transmission Date: 20130627
  Serious: Yes (Other)
  Sender: FDA-Public Use
  Company Number: 2012SP001992

PATIENT
  Age: 58 Year
  Sex: Female

DRUGS (1)
  1. ALVESCO [Suspect]
     Indication: ASTHMA
     Route: 055
     Dates: start: 20120612, end: 20120617

REACTIONS (3)
  - Dyspnoea [Recovered/Resolved]
  - Chest discomfort [Recovered/Resolved]
  - Bronchospasm [Recovered/Resolved]
